FAERS Safety Report 5580470-6 (Version None)
Quarter: 2007Q4

REPORT INFORMATION
  Report Type: 
  Country: None (occurrence: None)
  Receive Date: 20071231
  Receipt Date: 20071231
  Transmission Date: 20080405
  Serious: Yes (Disabling, Other)
  Sender: FDA-Public Use
  Company Number: None

PATIENT
  Sex: Female

DRUGS (1)
  1. ACETAMINOPHEN [Suspect]
     Indication: TOOTHACHE
     Dosage: 2 TABS INE TIME PO ONE TIME
     Route: 048
     Dates: start: 20071113, end: 20071113

REACTIONS (4)
  - CHEST DISCOMFORT [None]
  - COUGH [None]
  - PARAESTHESIA [None]
  - PHARMACEUTICAL PRODUCT COMPLAINT [None]
